APPROVED DRUG PRODUCT: NIMOTOP
Active Ingredient: NIMODIPINE
Strength: 30MG **Federal Register determination that product was not discontinued or withdrawn for safety or effectiveness reasons**
Dosage Form/Route: CAPSULE;ORAL
Application: N018869 | Product #001
Applicant: BAYER PHARMACEUTICALS CORP
Approved: Dec 28, 1988 | RLD: Yes | RS: No | Type: DISCN